FAERS Safety Report 12381420 (Version 4)
Quarter: 2016Q3

REPORT INFORMATION
  Report Type: Spontaneous
  Country: FR (occurrence: FR)
  Receive Date: 20160518
  Receipt Date: 20160912
  Transmission Date: 20161109
  Serious: Yes (Hospitalization, Other)
  Sender: FDA-Public Use
  Company Number: FR-JNJFOC-20160512933

PATIENT
  Sex: Male
  Weight: 65 kg

DRUGS (8)
  1. SIRTURO [Suspect]
     Active Substance: BEDAQUILINE FUMARATE
     Indication: TUBERCULOSIS
     Route: 048
     Dates: start: 20150314, end: 20160513
  2. AMIKACIN [Concomitant]
     Active Substance: AMIKACIN
     Route: 065
     Dates: start: 201508, end: 201602
  3. PARA-AMINOSALICYLIC ACID [Concomitant]
     Active Substance: AMINOSALICYLIC ACID
     Route: 065
     Dates: start: 201506, end: 201603
  4. LAMPRENE [Concomitant]
     Active Substance: CLOFAZIMINE
     Route: 065
     Dates: start: 201507
  5. ZYVOXID [Concomitant]
     Active Substance: LINEZOLID
     Route: 065
     Dates: start: 201506, end: 201604
  6. TAVANIC [Concomitant]
     Active Substance: LEVOFLOXACIN
     Route: 065
     Dates: start: 201506, end: 201604
  7. CYCLOSERINE. [Concomitant]
     Active Substance: CYCLOSERINE
     Route: 065
     Dates: start: 201506
  8. AMIKLIN [Concomitant]
     Active Substance: AMIKACIN SULFATE
     Route: 065

REACTIONS (4)
  - Bone infarction [Not Recovered/Not Resolved]
  - Osteonecrosis [Not Recovered/Not Resolved]
  - Arthralgia [Not Recovered/Not Resolved]
  - Arthralgia [Not Recovered/Not Resolved]

NARRATIVE: CASE EVENT DATE: 2016
